FAERS Safety Report 6555609-6 (Version None)
Quarter: 2010Q1

REPORT INFORMATION
  Report Type: 
  Country: None (occurrence: None)
  Receive Date: 20100128
  Receipt Date: 20091207
  Transmission Date: 20100710
  Serious: Yes (Hospitalization)
  Sender: FDA-Public Use
  Company Number: FR-SANOFI-AVENTIS-2009SA011314

PATIENT
  Age: 53 Year

DRUGS (8)
  1. OXALIPLATIN [Suspect]
     Indication: COLON CANCER
     Route: 041
     Dates: start: 20070426, end: 20070426
  2. OXALIPLATIN [Suspect]
     Route: 041
     Dates: start: 20070412, end: 20070412
  3. CETUXIMAB [Suspect]
     Indication: COLON CANCER
     Route: 041
     Dates: start: 20070412, end: 20070412
  4. CETUXIMAB [Suspect]
     Route: 041
     Dates: start: 20070426, end: 20070426
  5. FLUOROURACIL [Suspect]
     Indication: COLON CANCER
     Route: 041
     Dates: start: 20070426, end: 20070426
  6. FLUOROURACIL [Suspect]
     Route: 041
     Dates: start: 20070412, end: 20070412
  7. FOLINIC ACID [Suspect]
     Indication: COLON CANCER
     Route: 041
     Dates: start: 20070426, end: 20070426
  8. FOLINIC ACID [Suspect]
     Route: 041
     Dates: start: 20070412, end: 20070412

REACTIONS (2)
  - RENAL ARTERY DISSECTION [None]
  - RENAL NECROSIS [None]
